FAERS Safety Report 4390967-2 (Version None)
Quarter: 2004Q3

REPORT INFORMATION
  Report Type: 
  Country: None (occurrence: None)
  Receive Date: 20040706
  Receipt Date: 20040628
  Transmission Date: 20050211
  Serious: Yes (Hospitalization)
  Sender: FDA-Public Use
  Company Number: 04-06-0919

PATIENT
  Age: 9 Year
  Sex: Female

DRUGS (2)
  1. HYDROXYZINE [Suspect]
     Indication: PRURITUS
     Dosage: 12.5MG ORAL
     Route: 048
  2. ALBUTEROL SULFATE [Concomitant]

REACTIONS (6)
  - ATRIOVENTRICULAR BLOCK FIRST DEGREE [None]
  - BLOOD PRESSURE IMMEASURABLE [None]
  - EOSINOPHILIA [None]
  - PERIPHERAL COLDNESS [None]
  - PULSE ABNORMAL [None]
  - SUPRAVENTRICULAR TACHYCARDIA [None]
